FAERS Safety Report 19065835 (Version 1)
Quarter: 2021Q1

REPORT INFORMATION
  Report Type: Spontaneous
  Country: FR (occurrence: FR)
  Receive Date: 20210327
  Receipt Date: 20210327
  Transmission Date: 20210420
  Serious: Yes (Hospitalization)
  Sender: FDA-Public Use
  Company Number: FR-TEVA-2021-FR-1894006

PATIENT
  Age: 77 Year
  Sex: Female

DRUGS (11)
  1. SPIRONOLACTONE. [Concomitant]
     Active Substance: SPIRONOLACTONE
  2. COMIRNATY [Suspect]
     Active Substance: TOZINAMERAN
     Indication: COVID-19 IMMUNISATION
     Dosage: UNIT DOSE: 1 DOSAGE FORM
     Route: 030
     Dates: start: 20210215
  3. OFLOXACIN. [Suspect]
     Active Substance: OFLOXACIN
     Indication: CYSTITIS
     Dosage: UNIT DOSE: 400 MILLIGRAM
     Route: 048
     Dates: start: 20210225, end: 20210302
  4. KARDEGIC [Suspect]
     Active Substance: ASPIRIN DL-LYSINE
     Indication: HYPERTENSION
     Dosage: IN SACHET?DOSE, UNIT DOSE: 75 MILLIGRAM
     Route: 048
  5. COUMADINE 2 MG, COMPRIME SECABLE [Suspect]
     Active Substance: WARFARIN SODIUM
     Indication: ATRIAL FIBRILLATION
     Dosage: SCORED, UNIT DOSE: 4 MILLIGRAM
     Route: 048
     Dates: end: 20210302
  6. FUROSEMIDE. [Concomitant]
     Active Substance: FUROSEMIDE
  7. MALEATE DE TRIMEBUTINE [Concomitant]
  8. ATORVASTATINE CALCIQUE TRIHYDRATEE [Concomitant]
     Active Substance: ATORVASTATIN CALCIUM TRIHYDRATE
  9. PURSENNIDE 20 MG, COMPRIME ENROBE [Concomitant]
  10. EFFEXOR [Suspect]
     Active Substance: VENLAFAXINE HYDROCHLORIDE
     Indication: DEPRESSION
     Dosage: 37.5 MG MORNING 75 MG EVENING
     Route: 048
  11. ESOMEPRAZOLE. [Concomitant]
     Active Substance: ESOMEPRAZOLE MAGNESIUM

REACTIONS (3)
  - Hepatic haematoma [Recovering/Resolving]
  - Hepatitis [Recovering/Resolving]
  - International normalised ratio increased [Recovered/Resolved]

NARRATIVE: CASE EVENT DATE: 20210218
